FAERS Safety Report 9287370 (Version 2)
Quarter: 2013Q3

REPORT INFORMATION
  Report Type: Report from Study
  Country: IN (occurrence: IN)
  Receive Date: 20130514
  Receipt Date: 20130808
  Transmission Date: 20140515
  Serious: Yes (Other)
  Sender: FDA-Public Use
  Company Number: IN-ROCHE-1223038

PATIENT
  Age: 78 Year
  Sex: Male

DRUGS (1)
  1. RANIBIZUMAB [Suspect]
     Indication: AGE-RELATED MACULAR DEGENERATION
     Dosage: 0.5 MG/100 ML
     Route: 050
     Dates: start: 20130304

REACTIONS (6)
  - Glaucoma [Unknown]
  - Asthenia [Unknown]
  - Tension [Unknown]
  - Weight decreased [Unknown]
  - Mental disorder [Unknown]
  - Lacrimation increased [Not Recovered/Not Resolved]
